FAERS Safety Report 25054447 (Version 4)
Quarter: 2025Q3

REPORT INFORMATION
  Report Type: Spontaneous
  Country: US (occurrence: US)
  Receive Date: 20250307
  Receipt Date: 20250812
  Transmission Date: 20251020
  Serious: No
  Sender: SANOFI AVENTIS
  Company Number: US-SA-2025SA066745

PATIENT
  Age: 70 Year
  Sex: Female

DRUGS (3)
  1. DUPIXENT [Suspect]
     Active Substance: DUPILUMAB
     Indication: Asthma
     Dosage: 300 MG, QOW
     Route: 058
  2. DUPIXENT [Suspect]
     Active Substance: DUPILUMAB
     Indication: Chronic obstructive pulmonary disease
  3. DUPIXENT [Suspect]
     Active Substance: DUPILUMAB
     Indication: Hypersensitivity

REACTIONS (16)
  - Dyspnoea [Unknown]
  - Nausea [Unknown]
  - Wheezing [Unknown]
  - Injection site mass [Unknown]
  - Pain [Unknown]
  - Decreased appetite [Unknown]
  - Fall [Unknown]
  - Foot fracture [Recovering/Resolving]
  - Dizziness [Unknown]
  - Vertigo [Unknown]
  - Headache [Unknown]
  - Injection site pain [Unknown]
  - Rash [Unknown]
  - Product use in unapproved indication [Unknown]
  - Product dose omission in error [Unknown]
  - Inappropriate schedule of product administration [Unknown]

NARRATIVE: CASE EVENT DATE: 20250228
